FAERS Safety Report 6264228-0 (Version None)
Quarter: 2009Q3

REPORT INFORMATION
  Report Type: 
  Country: None (occurrence: None)
  Receive Date: 20090708
  Receipt Date: 20090708
  Transmission Date: 20100115
  Serious: No
  Sender: FDA-Public Use
  Company Number: None

PATIENT
  Sex: Female
  Weight: 74.8435 kg

DRUGS (2)
  1. ZICAM GEL SWABS MATRIXX INITIATIVES, INC. [Suspect]
     Indication: NASOPHARYNGITIS
     Dosage: 1 SWAB TWICE/DAY NASAL
     Route: 045
     Dates: start: 20070313, end: 20070315
  2. ZICAM GEL SWABS MATRIXX INITIATIVES, INC. [Suspect]
     Indication: NASOPHARYNGITIS
     Dosage: 1 SWAB TWICE/DAY NASAL
     Route: 045
     Dates: start: 20070409, end: 20070512

REACTIONS (2)
  - AGEUSIA [None]
  - ANOSMIA [None]
